FAERS Safety Report 7793560-4 (Version None)
Quarter: 2011Q4

REPORT INFORMATION
  Report Type: 
  Country: None (occurrence: None)
  Receive Date: 20111003
  Receipt Date: 20110927
  Transmission Date: 20120403
  Serious: Yes (Hospitalization)
  Sender: FDA-Public Use
  Company Number: PHHO2011NO15394

PATIENT
  Sex: Male
  Weight: 91.5 kg

DRUGS (4)
  1. EVEROLIMUS [Suspect]
     Indication: RENAL TRANSPLANT
     Dosage: UNK
     Route: 048
     Dates: start: 20080903
  2. NEORAL [Suspect]
     Indication: IMMUNOSUPPRESSION
     Dosage: 100 MG, BID
  3. PREDNISOLONE [Suspect]
     Indication: IMMUNOSUPPRESSION
     Dosage: 5 MG, QD
  4. MYFORTIC [Suspect]
     Indication: IMMUNOSUPPRESSION
     Dosage: 540 MG, BID
     Route: 048
     Dates: start: 20081022

REACTIONS (6)
  - NO THERAPEUTIC RESPONSE [None]
  - ERYSIPELAS [None]
  - FALL [None]
  - IMPAIRED HEALING [None]
  - SKIN GRAFT [None]
  - LIMB INJURY [None]
